FAERS Safety Report 16601603 (Version 1)
Quarter: 2019Q3

REPORT INFORMATION
  Report Type: Spontaneous
  Country: DE (occurrence: DE)
  Receive Date: 20190719
  Receipt Date: 20190719
  Transmission Date: 20191004
  Serious: Yes (Other)
  Sender: FDA-Public Use
  Company Number: DE-BAUSCH-BL-2019-020548

PATIENT
  Age: 55 Year
  Sex: Female

DRUGS (1)
  1. MYKOSERT [Suspect]
     Active Substance: SERTACONAZOLE NITRATE
     Indication: FUNGAL SKIN INFECTION
     Dosage: 3 SPRAY APPLICATIONS PER DAY, SKIN AND ATHLETE^S FOOT SOLUTION.
     Route: 055
     Dates: start: 20190327, end: 20190328

REACTIONS (9)
  - Oesophagitis chemical [Recovering/Resolving]
  - Aphasia [Recovering/Resolving]
  - Pyrexia [Recovering/Resolving]
  - Dyspnoea [Recovering/Resolving]
  - Bronchitis [Recovering/Resolving]
  - Accidental exposure to product [Recovering/Resolving]
  - Peripheral coldness [Recovering/Resolving]
  - Laryngitis [Recovering/Resolving]
  - Chills [Recovering/Resolving]
